FAERS Safety Report 6302631-0 (Version None)
Quarter: 2009Q3

REPORT INFORMATION
  Report Type: 
  Country: None (occurrence: None)
  Receive Date: 20090810
  Receipt Date: 20090805
  Transmission Date: 20100115
  Serious: Yes (Death)
  Sender: FDA-Public Use
  Company Number: JP-ASTRAZENECA-2009SE06976

PATIENT
  Age: 79 Year
  Sex: Male

DRUGS (1)
  1. OMEPRAL [Suspect]
     Indication: DUODENAL ULCER
     Route: 041
     Dates: start: 20090710, end: 20090713

REACTIONS (3)
  - DRUG INEFFECTIVE [None]
  - SHOCK [None]
  - SHOCK HAEMORRHAGIC [None]
